FAERS Safety Report 12310032 (Version 1)
Quarter: 2016Q2

REPORT INFORMATION
  Report Type: Spontaneous
  Country: US (occurrence: None)
  Receive Date: 20160426
  Receipt Date: 20160426
  Transmission Date: 20160815
  Serious: No
  Sender: FDA-Public Use
  Company Number: None

PATIENT
  Age: 65 Year
  Sex: Male
  Weight: 107.05 kg

DRUGS (2)
  1. NAFCILLIN [Suspect]
     Active Substance: NAFCILLIN\NAFCILLIN SODIUM
     Indication: URINARY TRACT INFECTION STAPHYLOCOCCAL
     Dosage: 2 GM OTHER IV
     Route: 042
     Dates: start: 20160126, end: 20160131
  2. NAFCILLIN [Suspect]
     Active Substance: NAFCILLIN\NAFCILLIN SODIUM
     Indication: STAPHYLOCOCCAL INFECTION
     Dosage: 2 GM OTHER IV
     Route: 042
     Dates: start: 20160126, end: 20160131

REACTIONS (2)
  - Renal failure [None]
  - Nephrogenic systemic fibrosis [None]

NARRATIVE: CASE EVENT DATE: 20160131
